FAERS Safety Report 16643679 (Version 1)
Quarter: 2019Q3

REPORT INFORMATION
  Report Type: Spontaneous
  Country: US (occurrence: US)
  Receive Date: 20190729
  Receipt Date: 20190729
  Transmission Date: 20191004
  Serious: No
  Sender: FDA-Public Use
  Company Number: US-PRINSTON PHARMACEUTICAL INC.-2019PRN00354

PATIENT
  Sex: Female

DRUGS (2)
  1. LOSARTAN POTASSIUM. [Suspect]
     Active Substance: LOSARTAN POTASSIUM
  2. LOSARTAN (TORRENT) [Suspect]
     Active Substance: LOSARTAN

REACTIONS (2)
  - Reaction to excipient [Unknown]
  - Malaise [Unknown]
